FAERS Safety Report 15166622 (Version 1)
Quarter: 2018Q3

REPORT INFORMATION
  Report Type: Report from Study
  Country: GR (occurrence: GR)
  Receive Date: 20180719
  Receipt Date: 20180719
  Transmission Date: 20181010
  Serious: Yes (Death, Hospitalization, Other)
  Sender: FDA-Public Use
  Company Number: GR-BAXTER-2018BAX018774

PATIENT
  Age: 60 Year
  Sex: Female
  Weight: 54 kg

DRUGS (24)
  1. ETOPOSIDE. [Suspect]
     Active Substance: ETOPOSIDE
     Indication: PLASMA CELL MYELOMA
     Dosage: 50 MILLIGRAM DAILY; CYCLICALLY ON DAYS 1,2,3 AND 4, DOSAGE FORM: UNSPECIFIED
     Route: 048
     Dates: start: 20160604
  2. ADRIBLASTINA [Suspect]
     Active Substance: DOXORUBICIN HYDROCHLORIDE
     Indication: PLASMA CELL MYELOMA
     Dosage: 15 MILLIGRAM DAILY; ON DAYS 1, 2, 3 AND 4. DOSAGE FORM: UNSPECIFIED
     Route: 042
     Dates: start: 20160604
  3. POMALIDOMIDE [Suspect]
     Active Substance: POMALIDOMIDE
     Indication: PLASMA CELL MYELOMA
     Dosage: 4 MILLIGRAM DAILY; DOSAGE FORM: UNSPECIFIED
     Route: 048
     Dates: start: 20170724, end: 20171212
  4. VELCADE [Suspect]
     Active Substance: BORTEZOMIB
     Dosage: INJECTION; ON DAYS 1, 8, 15 WITH 1 WEEK OFF EVERY 28 DAY CYCLE, 1.5 MILLIGRAM DAILY; DOSAGE FORM: LY
     Route: 058
     Dates: start: 20180122, end: 20180220
  5. THALIDOMIDE [Suspect]
     Active Substance: THALIDOMIDE
     Indication: PLASMA CELL MYELOMA
     Dosage: DOSAGE FORM: UNSPECIFIED; 100 MILLIGRAM DAILY; 21 DAYS CYCLE ON AND 7 DAYS OFF.
     Route: 048
     Dates: start: 20160604
  6. HEPARIN [Concomitant]
     Active Substance: HEPARIN SODIUM
     Indication: PRODUCT USED FOR UNKNOWN INDICATION
     Dosage: DOSAGE FORM: UNSPECIFIED
     Route: 065
  7. CARBOPLATIN. [Suspect]
     Active Substance: CARBOPLATIN
     Indication: PLASMA CELL MYELOMA
     Dosage: 30 MILLIGRAM DAILY; CYCLICALLY ON DAYS 1, 2, 3 AND 4, DOSAGE FORM: UNSPECIFIED
     Route: 042
     Dates: start: 20160604
  8. EPOETIN [Concomitant]
     Active Substance: ERYTHROPOIETIN
     Indication: PRODUCT USED FOR UNKNOWN INDICATION
     Dosage: DOSAGE FORM: UNSPECIFIED
     Route: 065
  9. ENDOXAN 1000 MG ? POWDER FOR SOLUTION FOR INJECTION [Suspect]
     Active Substance: CYCLOPHOSPHAMIDE
     Indication: PLASMA CELL MYELOMA
     Dosage: DOSAGE FORM: UNSPECIFIED; 500 MILLIGRAM DAILY: ON DAYS 1, 2, 3 AND 4. 141 DAYS DURATION
     Route: 042
     Dates: start: 20170724, end: 20171212
  10. DEXAMETHASONE. [Suspect]
     Active Substance: DEXAMETHASONE
     Dosage: 32 MILLIGRAM DAILY; ON DAYS 1, 2, 3 AND 4, DOSAGE FORM: UNSPECIFIED
     Route: 048
     Dates: start: 20170310, end: 20170627
  11. LENALIDOMIDE [Suspect]
     Active Substance: LENALIDOMIDE
     Indication: PLASMA CELL MYELOMA
     Dosage: 25 MILLIGRAM DAILY; DOSAGE FORM: UNSPECIFIED
     Route: 048
     Dates: start: 20170310, end: 20170316
  12. ASPIRIN. [Concomitant]
     Active Substance: ASPIRIN
     Indication: PRODUCT USED FOR UNKNOWN INDICATION
     Dosage: DOSAGE FORM: UNSPECIFIED
     Route: 065
  13. FILGRASTIM [Concomitant]
     Active Substance: FILGRASTIM
     Indication: PRODUCT USED FOR UNKNOWN INDICATION
     Dosage: DOSAGE FORM: UNSPECIFIED
     Route: 065
  14. ENDOXAN 1000 MG ? POWDER FOR SOLUTION FOR INJECTION [Suspect]
     Active Substance: CYCLOPHOSPHAMIDE
     Dosage: 500 MILLIGRAM DAILY; ON DAYS 1,2,3 AND 4. DOSAGE FORM: UNSPECIFIED
     Route: 042
     Dates: start: 20160604, end: 20170108
  15. DEXAMETHASONE. [Suspect]
     Active Substance: DEXAMETHASONE
     Indication: PLASMA CELL MYELOMA
     Dosage: 40 MILLIGRAM DAILY; CYCLICALLY ON DAYS 1,2,3 AND 4, DOSAGE FORM: UNSPECIFIED
     Route: 048
     Dates: start: 20160604, end: 20170108
  16. DEXAMETHASONE. [Suspect]
     Active Substance: DEXAMETHASONE
     Dosage: 20 MILLIGRAM DAILY; DOSAGE FORM: UNSPECIFIED
     Route: 042
     Dates: start: 20180122, end: 20180307
  17. DEXAMETHASONE. [Suspect]
     Active Substance: DEXAMETHASONE
     Dosage: 20 MILLIGRAM DAILY; ON DAYS 1, 2, 3 AND 4, DOSAGE FORM: UNSPECIFIED
     Route: 048
     Dates: start: 20170724, end: 20180111
  18. VELCADE [Suspect]
     Active Substance: BORTEZOMIB
     Indication: PLASMA CELL MYELOMA
     Dosage: INJECTION ON DAYS 1, 8, 15 WITH 1 WEEK OFF EVERY 28 DAY CYCLE, 2 MILLIGRAM DAILY; DOSAGE FORM: LYOPH
     Route: 058
     Dates: start: 20170310, end: 20170413
  19. VELCADE [Suspect]
     Active Substance: BORTEZOMIB
     Dosage: INJECTION ON DAYS 1, 8, 15 WITH 1 WEEK OFF EVERY 28 DAY CYCLE, 2 MILLIGRAM DAILY; DOSAGE FORM: LYOPH
     Route: 058
     Dates: start: 20170519, end: 20170627
  20. DARATUMUMAB [Suspect]
     Active Substance: DARATUMUMAB
     Indication: PLASMA CELL MYELOMA
     Dosage: 16 MG/KG DAILY;
     Route: 042
     Dates: start: 20180122, end: 20180306
  21. LENALIDOMIDE [Suspect]
     Active Substance: LENALIDOMIDE
     Dosage: 25 MILLIGRAM DAILY; DOSAGE FORM: UNSPECIFIED
     Route: 048
     Dates: start: 20170403
  22. ZOLEDRONIC ACID [Concomitant]
     Active Substance: ZOLEDRONIC ACID
     Indication: PRODUCT USED FOR UNKNOWN INDICATION
     Dosage: DOSAGE FORM: UNSPECIFIED
     Route: 065
  23. VELCADE [Suspect]
     Active Substance: BORTEZOMIB
     Dosage: 0.6 MILLIGRAM DAILY; DOSAGE FORM: LYOPHILIZED POWDER, ON DAYS 1,4,8 AND 11 WITH ONE WEEK OFF
     Route: 058
     Dates: start: 20170724, end: 20180111
  24. VELCADE [Suspect]
     Active Substance: BORTEZOMIB
     Dosage: INJECTION; 2 MILLIGRAM DAILY; LYOPHILIZED POWDER ON DAYS 1,4,8 AND 11 WITH ONE WEEK OFF. 218 DURATIO
     Route: 058
     Dates: start: 20160604, end: 20170108

REACTIONS (9)
  - Febrile neutropenia [Recovered/Resolved]
  - Sinus tachycardia [Not Recovered/Not Resolved]
  - Urinary tract infection bacterial [Recovered/Resolved]
  - Urinary tract infection [Recovered/Resolved]
  - Acute kidney injury [Fatal]
  - Respiratory tract infection [Recovered/Resolved]
  - Viral infection [Recovered/Resolved]
  - Pancytopenia [Not Recovered/Not Resolved]
  - Thrombocytopenia [Recovered/Resolved]

NARRATIVE: CASE EVENT DATE: 20170113
